FAERS Safety Report 9667846 (Version 2)
Quarter: 2013Q4

REPORT INFORMATION
  Report Type: Spontaneous
  Country: JP (occurrence: JP)
  Receive Date: 20131104
  Receipt Date: 20131113
  Transmission Date: 20140711
  Serious: Yes (Other)
  Sender: FDA-Public Use
  Company Number: PHHY2013JP124298

PATIENT
  Age: 9 Year
  Sex: Female

DRUGS (15)
  1. CARBAMAZEPINE [Suspect]
     Indication: CONVULSION
     Route: 048
  2. VALPROIC ACID [Suspect]
     Indication: CONVULSION
  3. LAMOTRIGINE [Suspect]
     Indication: MYOCLONUS
  4. TOPIRAMATE [Suspect]
     Indication: MYOCLONUS
  5. SULTIAME [Suspect]
     Indication: MYOCLONUS
  6. LEVETIRACETAM [Suspect]
     Indication: MYOCLONUS
  7. CLONAZEPAM [Suspect]
     Indication: MYOCLONUS
  8. METHYLPHENIDATE [Suspect]
     Indication: AFFECT LABILITY
  9. METHYLPHENIDATE [Suspect]
     Indication: ABNORMAL BEHAVIOUR
  10. ATOMOXETINE [Suspect]
     Indication: AFFECT LABILITY
  11. ATOMOXETINE [Suspect]
     Indication: ABNORMAL BEHAVIOUR
  12. PAROXETINE HYDROCHLORIDE [Suspect]
     Indication: AFFECT LABILITY
  13. PAROXETINE HYDROCHLORIDE [Suspect]
     Indication: ABNORMAL BEHAVIOUR
  14. RISPERIDONE [Suspect]
     Indication: AFFECT LABILITY
  15. RISPERIDONE [Suspect]
     Indication: ABNORMAL BEHAVIOUR

REACTIONS (8)
  - Altered state of consciousness [Recovering/Resolving]
  - Myoclonus [Recovering/Resolving]
  - Condition aggravated [Unknown]
  - Electroencephalogram abnormal [Unknown]
  - Speech disorder [Recovering/Resolving]
  - Affect lability [Recovered/Resolved]
  - Drug resistance [Unknown]
  - Drug ineffective [Unknown]
